FAERS Safety Report 5061642-6 (Version None)
Quarter: 2006Q3

REPORT INFORMATION
  Report Type: 
  Country: None (occurrence: None)
  Receive Date: 20060721
  Receipt Date: 20060710
  Transmission Date: 20061208
  Serious: Yes (Death)
  Sender: FDA-Public Use
  Company Number: 2006068708

PATIENT
  Age: 48 Year
  Sex: Male
  Weight: 90.7194 kg

DRUGS (3)
  1. CELEBREX [Suspect]
     Indication: ARTHRALGIA
     Dosage: 200 MG (200 MG, 1 IN 1 D),
     Dates: start: 20001208, end: 20040506
  2. CELEBREX [Suspect]
     Indication: BACK PAIN
     Dosage: 200 MG (200 MG, 1 IN 1 D),
     Dates: start: 20001208, end: 20040506
  3. CELEBREX [Suspect]
     Indication: NECK PAIN
     Dosage: 200 MG (200 MG, 1 IN 1 D),
     Dates: start: 20001208, end: 20040506

REACTIONS (3)
  - ARTERIOSCLEROSIS [None]
  - CORONARY ARTERY THROMBOSIS [None]
  - SUDDEN CARDIAC DEATH [None]
